FAERS Safety Report 4302848-0 (Version None)
Quarter: 2004Q1

REPORT INFORMATION
  Report Type: 
  Country: None (occurrence: None)
  Receive Date: 20040220
  Receipt Date: 20040120
  Transmission Date: 20041129
  Serious: Yes (Other)
  Sender: FDA-Public Use
  Company Number: 2004007434

PATIENT
  Sex: Male

DRUGS (2)
  1. ZOLOFT [Suspect]
     Indication: ILL-DEFINED DISORDER
  2. DONEPEZIL HCL [Suspect]
     Indication: ILL-DEFINED DISORDER

REACTIONS (1)
  - MENINGITIS VIRAL [None]
